FAERS Safety Report 8121810-3 (Version None)
Quarter: 2012Q1

REPORT INFORMATION
  Report Type: 
  Country: None (occurrence: None)
  Receive Date: 20120208
  Receipt Date: 20120131
  Transmission Date: 20120608
  Serious: Yes (Other)
  Sender: FDA-Public Use
  Company Number: US-US-EMD SERONO, INC.-7108590

PATIENT
  Sex: Female

DRUGS (5)
  1. REBIF [Suspect]
     Indication: MULTIPLE SCLEROSIS
     Route: 058
     Dates: start: 20070525
  2. CELEBREX [Concomitant]
     Indication: PAIN
  3. AMPYRA [Concomitant]
     Indication: GAIT DISTURBANCE
     Dates: end: 20120116
  4. GABAPENTIN [Concomitant]
     Indication: PAIN
  5. BACLOFEN [Concomitant]
     Indication: MUSCLE SPASTICITY

REACTIONS (7)
  - VENOUS INSUFFICIENCY [None]
  - DEPRESSION [None]
  - TOOTH INFECTION [None]
  - TOOTH EXTRACTION [None]
  - BALANCE DISORDER [None]
  - COORDINATION ABNORMAL [None]
  - MULTIPLE SCLEROSIS RELAPSE [None]
